FAERS Safety Report 19358071 (Version 1)
Quarter: 2021Q2

REPORT INFORMATION
  Report Type: Spontaneous
  Country: US (occurrence: US)
  Receive Date: 20210602
  Receipt Date: 20210602
  Transmission Date: 20210717
  Serious: Yes (Hospitalization)
  Sender: FDA-Public Use
  Company Number: None

PATIENT
  Sex: Female

DRUGS (17)
  1. AMOX/K CLAV [Concomitant]
     Active Substance: AMOXICILLIN\CLAVULANATE POTASSIUM
  2. BRIMONIDINE OP [Concomitant]
  3. FUROSEMIDE. [Concomitant]
     Active Substance: FUROSEMIDE
  4. MIRTAZAPINE. [Concomitant]
     Active Substance: MIRTAZAPINE
  5. ONDANSETRON [Concomitant]
     Active Substance: ONDANSETRON
  6. PILOCARPINE. [Concomitant]
     Active Substance: PILOCARPINE
  7. PERCOCET [Concomitant]
     Active Substance: ACETAMINOPHEN\OXYCODONE HYDROCHLORIDE
  8. AMBRISENTAN [Suspect]
     Active Substance: AMBRISENTAN
     Indication: PULMONARY ARTERIAL HYPERTENSION
     Route: 048
     Dates: start: 20200903
  9. BISOPROL FUM [Concomitant]
     Active Substance: BISOPROLOL FUMARATE
  10. MAGNESIUM?OX [Concomitant]
  11. METHIMAZOLE. [Concomitant]
     Active Substance: METHIMAZOLE
  12. MIDODRINE [Concomitant]
     Active Substance: MIDODRINE
  13. PANTOPRAZOLE [Concomitant]
     Active Substance: PANTOPRAZOLE
  14. ALPRAZOLAM. [Concomitant]
     Active Substance: ALPRAZOLAM
  15. LUMIGAN [Concomitant]
     Active Substance: BIMATOPROST
  16. POT CHLORIDE ER [Concomitant]
  17. HYDROCO/APAP [Concomitant]
     Active Substance: ACETAMINOPHEN\HYDROCODONE

REACTIONS (1)
  - Hospitalisation [None]
